FAERS Safety Report 5907638-0 (Version None)
Quarter: 2008Q4

REPORT INFORMATION
  Report Type: 
  Country: None (occurrence: None)
  Receive Date: 20081002
  Receipt Date: 20081002
  Transmission Date: 20090506
  Serious: Yes (Hospitalization)
  Sender: FDA-Public Use
  Company Number: None

PATIENT
  Sex: Female
  Weight: 72 kg

DRUGS (3)
  1. CARBOPLATIN [Suspect]
     Indication: OROPHARYNGEAL CANCER STAGE UNSPECIFIED
     Dosage: AUC 6 Q4WKS IV
     Route: 042
     Dates: start: 20080910
  2. TAXOL [Suspect]
     Indication: OROPHARYNGEAL CANCER STAGE UNSPECIFIED
     Dosage: 100 MG/M2 IV QW
     Route: 042
     Dates: start: 20080924
  3. CETUXIMAB [Suspect]
     Indication: OROPHARYNGEAL CANCER STAGE UNSPECIFIED
     Dosage: 250 MG/M2 IV QWK
     Route: 042
     Dates: start: 20080820

REACTIONS (1)
  - PULMONARY EMBOLISM [None]
